FAERS Safety Report 21977360 (Version 2)
Quarter: 2023Q2

REPORT INFORMATION
  Report Type: Spontaneous
  Country: US (occurrence: US)
  Receive Date: 20230210
  Receipt Date: 20230413
  Transmission Date: 20230722
  Serious: Yes (Other)
  Sender: FDA-Public Use
  Company Number: US-JNJFOC-20230210846

PATIENT
  Age: 76 Year
  Sex: Female
  Weight: 72.640 kg

DRUGS (6)
  1. XARELTO [Suspect]
     Active Substance: RIVAROXABAN
     Indication: Arrhythmia
     Route: 048
     Dates: start: 20220909
  2. XARELTO [Suspect]
     Active Substance: RIVAROXABAN
     Indication: Cerebrovascular accident prophylaxis
  3. SOTALOL [Concomitant]
     Active Substance: SOTALOL
     Indication: Blood pressure measurement
     Dates: start: 20211026
  4. LISINOPRIL [Concomitant]
     Active Substance: LISINOPRIL
     Indication: Blood pressure measurement
     Dates: start: 2012
  5. ORTHOMEGA [Concomitant]
     Dosage: THERAPY START DATE- 2YEARS
  6. HYDROCORTISONE ACETATE [Concomitant]
     Active Substance: HYDROCORTISONE ACETATE
     Dates: start: 20230311, end: 20230321

REACTIONS (14)
  - Atrial fibrillation [Unknown]
  - Mitral valve incompetence [Unknown]
  - Urinary incontinence [Unknown]
  - Blood pressure diastolic increased [Unknown]
  - Anal incontinence [Unknown]
  - Bronchitis [Unknown]
  - Arthritis [Unknown]
  - Swelling face [Unknown]
  - Haemorrhoidal haemorrhage [Unknown]
  - Joint stiffness [Unknown]
  - Peripheral swelling [Unknown]
  - Diarrhoea [Unknown]
  - Faeces discoloured [Unknown]
  - Chest pain [Unknown]

NARRATIVE: CASE EVENT DATE: 20230101
